FAERS Safety Report 7824183-6 (Version None)
Quarter: 2011Q4

REPORT INFORMATION
  Report Type: 
  Country: None (occurrence: None)
  Receive Date: 20111014
  Receipt Date: 20111004
  Transmission Date: 20120403
  Serious: Yes (Hospitalization)
  Sender: FDA-Public Use
  Company Number: DSU-2011-07380

PATIENT
  Age: 75 Year
  Sex: Male

DRUGS (4)
  1. MULTIVITAME (S) (ERGOCALCIFEROL, ASCORBIC ACID, FOLIC ACID, THIAMINE H [Concomitant]
  2. CRESTOR [Suspect]
     Indication: PRODUCT USED FOR UNKNOWN INDICATION
     Dosage: 10 MG (10 MG, QD), PER ORAL
     Route: 048
  3. FLOMAX CR (TAMSULOSIN HYDROCHLORIDE) [Concomitant]
  4. OLMETEC PLUS (HYDROCHLOROTHIAZIDE, OLMESARTAN) (TABLET) [Suspect]
     Indication: PRODUCT USED FOR UNKNOWN INDICATION
     Dosage: ??/12.5MG (QD), PER ORAL
     Route: 048

REACTIONS (4)
  - DIZZINESS [None]
  - PAIN [None]
  - HEADACHE [None]
  - ABASIA [None]
